FAERS Safety Report 8623353 (Version 3)
Quarter: 2013Q3

REPORT INFORMATION
  Report Type: Spontaneous
  Country: PT (occurrence: PT)
  Receive Date: 20120620
  Receipt Date: 20130913
  Transmission Date: 20140515
  Serious: Yes (Other)
  Sender: FDA-Public Use
  Company Number: PT-JNJFOC-20120606213

PATIENT
  Age: 54 Year
  Sex: Male

DRUGS (3)
  1. STELARA [Suspect]
     Indication: PSORIASIS
     Dosage: FOLLOWED BY MAINTENANCE THERAPY EVERY 12 WEEKS
     Route: 058
  2. RAMIPRIL [Concomitant]
     Indication: HYPERTENSION
     Route: 048
  3. SIMVASTATIN [Concomitant]
     Indication: DYSLIPIDAEMIA
     Route: 065

REACTIONS (1)
  - Plasma cell myeloma [Recovering/Resolving]
